FAERS Safety Report 24578811 (Version 2)
Quarter: 2024Q4

REPORT INFORMATION
  Report Type: Spontaneous
  Country: IT (occurrence: IT)
  Receive Date: 20241105
  Receipt Date: 20241207
  Transmission Date: 20250115
  Serious: Yes (Hospitalization)
  Sender: JOHNSON AND JOHNSON
  Company Number: None

PATIENT
  Age: 55 Year
  Sex: Male

DRUGS (2)
  1. SYMTUZA [Suspect]
     Active Substance: COBICISTAT\DARUNAVIR\EMTRICITABINE\TENOFOVIR ALAFENAMIDE
     Indication: HIV infection
     Route: 048
     Dates: start: 20240521
  2. HALCION [Interacting]
     Active Substance: TRIAZOLAM
     Indication: Product used for unknown indication
     Route: 048

REACTIONS (3)
  - Sopor [Recovering/Resolving]
  - Fall [Recovering/Resolving]
  - Drug interaction [Unknown]

NARRATIVE: CASE EVENT DATE: 20240501
